APPROVED DRUG PRODUCT: GENOPTIC
Active Ingredient: GENTAMICIN SULFATE
Strength: EQ 0.3% BASE
Dosage Form/Route: SOLUTION/DROPS;OPHTHALMIC
Application: A062452 | Product #001
Applicant: ALLERGAN
Approved: Oct 10, 1984 | RLD: No | RS: No | Type: DISCN